FAERS Safety Report 8302300 (Version 3)
Quarter: 2013Q4

REPORT INFORMATION
  Report Type: Spontaneous
  Country: US (occurrence: US)
  Receive Date: 20111220
  Receipt Date: 20131231
  Transmission Date: 20140711
  Serious: Yes (Other)
  Sender: FDA-Public Use
  Company Number: US-BAYER-2011-119003

PATIENT
  Age: 39 Year
  Sex: Female
  Weight: 74.83 kg

DRUGS (5)
  1. YAZ [Suspect]
     Dosage: UNK
     Route: 048
     Dates: start: 2006, end: 2010
  2. YASMIN [Suspect]
     Dosage: UNK
     Route: 048
     Dates: start: 2004, end: 2005
  3. REGLAN [Concomitant]
  4. NEXIUM [Concomitant]
  5. PROTONIX [Concomitant]

REACTIONS (7)
  - Gallbladder disorder [None]
  - Cholecystitis [None]
  - Injury [None]
  - Pain [None]
  - Emotional distress [None]
  - Nausea [None]
  - Diarrhoea [None]
